FAERS Safety Report 24690003 (Version 1)
Quarter: 2024Q4

REPORT INFORMATION
  Report Type: Spontaneous
  Country: US (occurrence: None)
  Receive Date: 20241202
  Receipt Date: 20241202
  Transmission Date: 20250115
  Serious: Yes (Hospitalization)
  Sender: Public
  Company Number: None

PATIENT
  Sex: Male

DRUGS (1)
  1. LENALIDOMIDE [Suspect]
     Active Substance: LENALIDOMIDE
     Indication: Follicular lymphoma
     Dosage: OTHER FREQUENCY : DAILYX21 DAYS ON, 7OFF;?
     Route: 048
     Dates: start: 20240122

REACTIONS (4)
  - Fall [None]
  - Head injury [None]
  - Skin laceration [None]
  - Therapy interrupted [None]
